FAERS Safety Report 24349652 (Version 1)
Quarter: 2024Q3

REPORT INFORMATION
  Report Type: Spontaneous
  Country: US (occurrence: US)
  Receive Date: 20240923
  Receipt Date: 20240923
  Transmission Date: 20241016
  Serious: Yes (Death)
  Sender: AMGEN
  Company Number: US-AMGEN-USASP2024187848

PATIENT

DRUGS (2)
  1. BEVACIZUMAB [Suspect]
     Active Substance: BEVACIZUMAB
     Indication: Colorectal cancer
     Dosage: 5 MILLIGRAM/KILOGRAM, DAYS 1 AND 15 OF EACH 28-DAY TREATMENT CYCLE
     Route: 042
  2. IRINOTECAN [Concomitant]
     Active Substance: IRINOTECAN
     Indication: Colorectal cancer
     Dosage: 180 MILLIGRAM/SQ. METER
     Route: 042

REACTIONS (1)
  - Large intestine perforation [Fatal]
